FAERS Safety Report 6127107-5 (Version None)
Quarter: 2009Q1

REPORT INFORMATION
  Report Type: 
  Country: None (occurrence: None)
  Receive Date: 20090318
  Receipt Date: 20090311
  Transmission Date: 20090719
  Serious: Yes (Life-Threatening, Hospitalization, Other)
  Sender: FDA-Public Use
  Company Number: ADE2008-0409

PATIENT
  Age: 38 Year
  Sex: Male

DRUGS (4)
  1. AMLODIPINE [Suspect]
     Dosage: 630MG
  2. CITALOPRAM HYDROBROMIDE [Concomitant]
  3. PARACETAMOL [Concomitant]
  4. ZOPICLONE [Concomitant]

REACTIONS (8)
  - BLOOD PRESSURE IMMEASURABLE [None]
  - COMA [None]
  - DILATATION VENTRICULAR [None]
  - EJECTION FRACTION DECREASED [None]
  - HYPERTENSION [None]
  - LACTIC ACIDOSIS [None]
  - PNEUMONIA [None]
  - PULSE ABSENT [None]
